FAERS Safety Report 9484281 (Version 1)
Quarter: 2013Q3

REPORT INFORMATION
  Report Type: Spontaneous
  Country: US (occurrence: US)
  Receive Date: 20130828
  Receipt Date: 20130828
  Transmission Date: 20140515
  Serious: Yes (Other)
  Sender: FDA-Public Use
  Company Number: US-AMGEN-KDL397647

PATIENT
  Age: 45 Year
  Sex: Male

DRUGS (3)
  1. ENBREL [Suspect]
     Indication: ANKYLOSING SPONDYLITIS
     Dosage: 50 MG, QWK
     Route: 058
  2. METHOTREXATE [Concomitant]
     Dosage: UNK UNK, UNK
  3. CYCLOSPORINE [Concomitant]

REACTIONS (7)
  - Conjunctival ulcer [Recovered/Resolved]
  - Neck pain [Not Recovered/Not Resolved]
  - Ankylosing spondylitis [Unknown]
  - Arthropathy [Recovered/Resolved]
  - Micturition urgency [Unknown]
  - Skin odour abnormal [Unknown]
  - Mouth ulceration [Recovered/Resolved]
